FAERS Safety Report 25878677 (Version 1)
Quarter: 2025Q4

REPORT INFORMATION
  Report Type: Spontaneous
  Country: EU (occurrence: EU)
  Receive Date: 20251003
  Receipt Date: 20251003
  Transmission Date: 20260118
  Serious: Yes (Hospitalization)
  Sender: BRISTOL-MYERS SQUIBB COMPANY
  Company Number: None

PATIENT
  Age: 16 Year
  Sex: Male
  Weight: 54.7 kg

DRUGS (2)
  1. NULOJIX [Suspect]
     Active Substance: BELATACEPT
     Indication: Prophylaxis against transplant rejection
     Dates: start: 20241112, end: 20250107
  2. NULOJIX [Suspect]
     Active Substance: BELATACEPT
     Dates: start: 20250212, end: 20250527

REACTIONS (1)
  - Cystitis interstitial [Recovering/Resolving]

NARRATIVE: CASE EVENT DATE: 20250101
